FAERS Safety Report 23761950 (Version 1)
Quarter: 2024Q2

REPORT INFORMATION
  Report Type: Spontaneous
  Country: US (occurrence: US)
  Receive Date: 20240419
  Receipt Date: 20240419
  Transmission Date: 20240716
  Serious: Yes (Hospitalization)
  Sender: FDA-Public Use
  Company Number: US-009507513-2404USA007544

PATIENT
  Sex: Male

DRUGS (1)
  1. KEYTRUDA [Suspect]
     Active Substance: PEMBROLIZUMAB
     Indication: Renal cancer
     Dosage: EVERY 3 WEEKS; ROUTE OF ADMINISTRATION: INFUSION
     Dates: start: 202309, end: 20240411

REACTIONS (5)
  - Extrasystoles [Recovering/Resolving]
  - Heart rate irregular [Recovering/Resolving]
  - Flatulence [Recovering/Resolving]
  - Abdominal pain upper [Recovering/Resolving]
  - Paraesthesia [Recovering/Resolving]
